FAERS Safety Report 9213968 (Version 1)
Quarter: 2013Q1

REPORT INFORMATION
  Report Type: Spontaneous
  Country: US (occurrence: US)
  Receive Date: 20120827
  Receipt Date: 20120827
  Transmission Date: 20140127
  Serious: No
  Sender: FDA-Public Use
  Company Number: 351661

PATIENT
  Age: 66 Year
  Sex: Female

DRUGS (1)
  1. VICTOZA (LIRAGLUTIDE) SOLUTION FOR INJECTION, 6 MG/ML [Suspect]
     Indication: TYPE 2 DIABETES MELLITUS
     Route: 058
     Dates: start: 20120424

REACTIONS (6)
  - Energy increased [None]
  - Heart rate increased [None]
  - Hiccups [None]
  - Flatulence [None]
  - Abdominal pain [None]
  - Eructation [None]
